FAERS Safety Report 12147981 (Version 3)
Quarter: 2016Q2

REPORT INFORMATION
  Report Type: Spontaneous
  Country: US (occurrence: US)
  Receive Date: 20160304
  Receipt Date: 20160418
  Transmission Date: 20160815
  Serious: Yes (Hospitalization, Other)
  Sender: FDA-Public Use
  Company Number: US-PFIZER INC-2016135258

PATIENT
  Age: 76 Year
  Sex: Female
  Weight: 79.37 kg

DRUGS (6)
  1. DILANTIN [Suspect]
     Active Substance: PHENYTOIN
     Indication: EPILEPSY
     Dosage: 2 DF, 1X/DAY, AT NIGHT
  2. DILANTIN [Suspect]
     Active Substance: PHENYTOIN
     Dosage: 100 MG, 3X/DAY
     Route: 048
  3. LISINOPRIL. [Concomitant]
     Active Substance: LISINOPRIL
     Indication: BLOOD PRESSURE MEASUREMENT
     Dosage: 20 MG, UNK
  4. DILANTIN [Suspect]
     Active Substance: PHENYTOIN
     Dosage: 3 DF, 1X/DAY, AT NIGHT
  5. MELOXICAM. [Concomitant]
     Active Substance: MELOXICAM
     Indication: ARTHRITIS
     Dosage: 15 MG
  6. METOPROLOL ER [Concomitant]
     Active Substance: METOPROLOL SUCCINATE
     Indication: BLOOD PRESSURE MEASUREMENT
     Dosage: 50 MG

REACTIONS (10)
  - Seizure [Unknown]
  - Laceration [Unknown]
  - Jaw disorder [Unknown]
  - Toxicity to various agents [Unknown]
  - Anticonvulsant drug level decreased [Unknown]
  - Condition aggravated [Recovered/Resolved]
  - Body height decreased [Unknown]
  - Dizziness [Unknown]
  - Anticonvulsant drug level increased [Unknown]
  - Fall [Unknown]

NARRATIVE: CASE EVENT DATE: 201508
